FAERS Safety Report 5690600-3 (Version None)
Quarter: 2008Q1

REPORT INFORMATION
  Report Type: 
  Country: None (occurrence: None)
  Receive Date: 20080331
  Receipt Date: 20080331
  Transmission Date: 20080703
  Serious: No
  Sender: FDA-Public Use
  Company Number: None

PATIENT
  Age: 9 Year
  Sex: Female
  Weight: 27.2158 kg

DRUGS (1)
  1. SINGULAIR [Suspect]
     Dosage: 5MG DAILY CUTANEOUS
     Route: 003
     Dates: start: 20060101, end: 20080328

REACTIONS (6)
  - AFFECTIVE DISORDER [None]
  - CHEST PAIN [None]
  - HALLUCINATION, AUDITORY [None]
  - ILL-DEFINED DISORDER [None]
  - PAIN IN EXTREMITY [None]
  - SELF INJURIOUS BEHAVIOUR [None]
